FAERS Safety Report 8179418-X (Version None)
Quarter: 2012Q1

REPORT INFORMATION
  Report Type: 
  Country: None (occurrence: None)
  Receive Date: 20120302
  Receipt Date: 20120227
  Transmission Date: 20120608
  Serious: Yes (Death, Other)
  Sender: FDA-Public Use
  Company Number: CHPA2012US003764

PATIENT
  Age: 58 Year
  Sex: Female

DRUGS (7)
  1. CARPROFEN [Suspect]
     Dosage: UNK,UNK
     Route: 048
  2. DRUG THERAPY NOS [Suspect]
     Dosage: UNK,UNK
     Route: 048
  3. DIPHENHYDRAMINE HCL [Suspect]
     Dosage: UNK,UNK
     Route: 048
  4. BENZODIAZEPINES [Suspect]
     Dosage: UNK,UNK
     Route: 048
  5. LIPID MODIFYING AGENTS [Suspect]
     Dosage: UNK,UNK
     Route: 048
  6. CARDIAC GLYCOSIDES [Suspect]
     Dosage: UNK,UNK
     Route: 048
  7. LEVOTHYROXINE SODIUM [Suspect]
     Dosage: UNK,UNK
     Route: 048

REACTIONS (2)
  - COMPLETED SUICIDE [None]
  - CARDIO-RESPIRATORY ARREST [None]
